FAERS Safety Report 8193306-4 (Version None)
Quarter: 2012Q1

REPORT INFORMATION
  Report Type: 
  Country: None (occurrence: None)
  Receive Date: 20120308
  Receipt Date: 20120229
  Transmission Date: 20120608
  Serious: Yes (Hospitalization)
  Sender: FDA-Public Use
  Company Number: JP-EISAI INC-E3810-05349-SPO-JP

PATIENT
  Age: 65 Year
  Sex: Male

DRUGS (3)
  1. RABEPRAZOLE SODIUM [Suspect]
     Indication: GASTRIC ULCER HELICOBACTER
     Route: 048
     Dates: start: 20110101, end: 20110501
  2. AMOXICILLIN [Suspect]
     Indication: GASTRIC ULCER HELICOBACTER
     Route: 048
     Dates: start: 20110101, end: 20110501
  3. CLARITHROMYCIN [Suspect]
     Indication: GASTRIC ULCER HELICOBACTER
     Route: 048
     Dates: start: 20110101, end: 20110501

REACTIONS (6)
  - PYREXIA [None]
  - VOMITING [None]
  - HICCUPS [None]
  - COLONIC POLYP [None]
  - PSEUDOMEMBRANOUS COLITIS [None]
  - ASCITES [None]
